FAERS Safety Report 13999736 (Version 4)
Quarter: 2018Q1

REPORT INFORMATION
  Report Type: Report from Study
  Country: US (occurrence: US)
  Receive Date: 20170922
  Receipt Date: 20180112
  Transmission Date: 20180508
  Serious: No
  Sender: FDA-Public Use
  Company Number: PHEH2017US030514

PATIENT
  Age: 47 Year
  Sex: Male

DRUGS (10)
  1. BETAMETHASONE. [Concomitant]
     Active Substance: BETAMETHASONE
     Indication: PSORIASIS
     Dosage: 0.05 %, UNK
     Route: 061
     Dates: start: 20171101
  2. LOSARTAN. [Concomitant]
     Active Substance: LOSARTAN
     Indication: PRODUCT USED FOR UNKNOWN INDICATION
     Dosage: 1 DF, UNK
     Route: 048
  3. COSENTYX [Suspect]
     Active Substance: SECUKINUMAB
     Indication: PSORIASIS
     Dosage: 2 MG, QMO
     Route: 058
     Dates: start: 20170801
  4. AMBIEN [Concomitant]
     Active Substance: ZOLPIDEM TARTRATE
     Indication: PRODUCT USED FOR UNKNOWN INDICATION
     Dosage: 10 MG, UNK
     Route: 048
  5. ESOMEPRAZOLE [Concomitant]
     Active Substance: ESOMEPRAZOLE
     Indication: PRODUCT USED FOR UNKNOWN INDICATION
     Dosage: 20 MG, PRN
     Route: 048
  6. MELOXICAM. [Concomitant]
     Active Substance: MELOXICAM
     Indication: PRODUCT USED FOR UNKNOWN INDICATION
     Dosage: 15 MG, UNK
     Route: 048
  7. COSENTYX [Suspect]
     Active Substance: SECUKINUMAB
     Dosage: 300 MG, Q4W
     Route: 058
     Dates: start: 20170910
  8. CLINDAMYCIN. [Concomitant]
     Active Substance: CLINDAMYCIN
     Indication: FOLLICULITIS
     Dosage: 1 %, UNK
     Route: 061
     Dates: start: 20171101
  9. CYCLOBENZAPRINE. [Concomitant]
     Active Substance: CYCLOBENZAPRINE
     Indication: PRODUCT USED FOR UNKNOWN INDICATION
     Dosage: 10 MG, TID
     Route: 048
  10. FLUTICASONE. [Concomitant]
     Active Substance: FLUTICASONE
     Indication: PRODUCT USED FOR UNKNOWN INDICATION
     Dosage: 50 MCG/ML, UNK
     Route: 045

REACTIONS (7)
  - Incorrect dose administered [Unknown]
  - Feeling hot [Unknown]
  - Injection site bruising [Unknown]
  - Inappropriate schedule of drug administration [Unknown]
  - Diarrhoea [Recovered/Resolved]
  - Injection site pain [Not Recovered/Not Resolved]
  - Wrong technique in device usage process [Not Recovered/Not Resolved]

NARRATIVE: CASE EVENT DATE: 20170910
